FAERS Safety Report 25908703 (Version 2)
Quarter: 2025Q4

REPORT INFORMATION
  Report Type: Spontaneous
  Country: JP (occurrence: JP)
  Receive Date: 20251011
  Receipt Date: 20251028
  Transmission Date: 20260117
  Serious: Yes (Hospitalization)
  Sender: ALEXION PHARMACEUTICALS
  Company Number: JP-ASTRAZENECA-202510JPN005253JP

PATIENT
  Age: 61 Year
  Sex: Female
  Weight: 54 kg

DRUGS (3)
  1. SYMBICORT [Suspect]
     Active Substance: BUDESONIDE\FORMOTEROL FUMARATE DIHYDRATE
     Indication: Asthma
     Dosage: 3PUFF*2
     Route: 065
  2. TEZSPIRE [Suspect]
     Active Substance: TEZEPELUMAB-EKKO
     Indication: Asthma
     Dosage: 210 MILLIGRAM, Q4W
     Route: 065
  3. TEZSPIRE [Suspect]
     Active Substance: TEZEPELUMAB-EKKO

REACTIONS (5)
  - Movement disorder [Unknown]
  - Rhinitis [Unknown]
  - Respiratory disorder [Unknown]
  - Upper respiratory tract infection [Unknown]
  - Influenza [Unknown]
